FAERS Safety Report 13622009 (Version 1)
Quarter: 2017Q2

REPORT INFORMATION
  Report Type: Spontaneous
  Country: US (occurrence: US)
  Receive Date: 20170607
  Receipt Date: 20170607
  Transmission Date: 20170830
  Serious: No
  Sender: FDA-Public Use
  Company Number: US-ROCHE-1913758

PATIENT

DRUGS (1)
  1. XELODA [Suspect]
     Active Substance: CAPECITABINE
     Indication: PRODUCT USED FOR UNKNOWN INDICATION
     Dosage: 3000 MP PER DAY FOR 8 CYCLES
     Route: 065

REACTIONS (4)
  - Drug ineffective [Unknown]
  - Lacrimation increased [Unknown]
  - Vision blurred [Unknown]
  - Eye irritation [Unknown]
